FAERS Safety Report 12883912 (Version 3)
Quarter: 2017Q2

REPORT INFORMATION
  Report Type: Spontaneous
  Country: US (occurrence: US)
  Receive Date: 20161026
  Receipt Date: 20170424
  Transmission Date: 20170830
  Serious: Yes (Hospitalization, Other)
  Sender: FDA-Public Use
  Company Number: US-PFIZER INC-2016492681

PATIENT
  Age: 59 Year
  Sex: Female

DRUGS (14)
  1. SUTENT [Suspect]
     Active Substance: SUNITINIB MALATE
     Indication: RENAL CELL CARCINOMA
     Dosage: 25 MG, CYCLIC
  2. SUTENT [Suspect]
     Active Substance: SUNITINIB MALATE
     Dosage: 12.5 MG, DAILY, FOR 28 DAYS ON / 14 DAYS OFF
  3. VITAMIN D3 [Concomitant]
     Active Substance: CHOLECALCIFEROL
     Dosage: UNK
  4. SUTENT [Suspect]
     Active Substance: SUNITINIB MALATE
     Indication: RENAL CELL CARCINOMA STAGE IV
     Dosage: 50 MG, CYCLIC [4 WEEKS THEN 2 WEEKS OFF]
     Route: 048
     Dates: start: 20160524, end: 20160605
  5. SUTENT [Suspect]
     Active Substance: SUNITINIB MALATE
     Dosage: 12.5 MG, DAILY
     Route: 048
     Dates: start: 20160525
  6. ESCITALOPRAM OXALATE. [Concomitant]
     Active Substance: ESCITALOPRAM OXALATE
     Dosage: UNK
  7. LEVOTHYROXINE. [Concomitant]
     Active Substance: LEVOTHYROXINE
     Dosage: UNK
  8. BABY ASPIRIN [Concomitant]
     Active Substance: ASPIRIN
     Dosage: UNK
  9. ONDANSETRON [Concomitant]
     Active Substance: ONDANSETRON
     Dosage: UNK
  10. NEXIUM [Concomitant]
     Active Substance: ESOMEPRAZOLE MAGNESIUM
     Dosage: UNK
  11. ASA [Concomitant]
     Active Substance: ASPIRIN
     Dosage: UNK
  12. METFORMIN [Concomitant]
     Active Substance: METFORMIN HYDROCHLORIDE
     Dosage: UNK
  13. GLIPIZIDE. [Concomitant]
     Active Substance: GLIPIZIDE
     Dosage: UNK
  14. SIMVASTATIN. [Concomitant]
     Active Substance: SIMVASTATIN
     Dosage: UNK

REACTIONS (15)
  - Dyspepsia [Unknown]
  - Mucosal inflammation [Recovered/Resolved]
  - Oral pain [Unknown]
  - Feeding disorder [Unknown]
  - Blood count abnormal [Unknown]
  - Gastrooesophageal reflux disease [Recovered/Resolved]
  - Back pain [Recovered/Resolved]
  - Thrombocytopenia [Unknown]
  - Hypophagia [Recovered/Resolved]
  - Haematoma [Recovered/Resolved]
  - Seizure [Recovered/Resolved]
  - Psoas abscess [Recovered/Resolved]
  - Dysphagia [Unknown]
  - Neutropenia [Recovered/Resolved]
  - Flank pain [Recovered/Resolved]

NARRATIVE: CASE EVENT DATE: 20160604
